FAERS Safety Report 7339288-6 (Version None)
Quarter: 2011Q1

REPORT INFORMATION
  Report Type: 
  Country: None (occurrence: None)
  Receive Date: 20110308
  Receipt Date: 20110114
  Transmission Date: 20110831
  Serious: Yes (Hospitalization, Other)
  Sender: FDA-Public Use
  Company Number: JP-BAYER-200832568GPV

PATIENT
  Sex: Male
  Weight: 59 kg

DRUGS (16)
  1. ASPIRIN [Suspect]
     Indication: ANTIPLATELET THERAPY
     Dosage: DAILY DOSE 100 MG
     Route: 048
     Dates: start: 20081009, end: 20081128
  2. ITOROL [Suspect]
     Dosage: DAILY DOSE 20 MG
     Route: 048
     Dates: start: 20081210
  3. MAGMITT [Suspect]
     Indication: CONSTIPATION
     Dosage: DAILY DOSE 750 MG
     Route: 048
     Dates: start: 20081009, end: 20081128
  4. MICARDIS [Suspect]
     Indication: HYPERTENSION
     Dosage: DAILY DOSE 40 MG
     Route: 048
     Dates: start: 20081009, end: 20081128
  5. ITOROL [Suspect]
     Indication: PRODUCT USED FOR UNKNOWN INDICATION
     Dosage: DAILY DOSE 20 MG
     Route: 048
     Dates: start: 20081009, end: 20081128
  6. WARFARIN [Suspect]
     Dosage: 4 MG (DAILY DOSE), , ORAL
     Route: 048
     Dates: start: 20081202
  7. ALDACTONE [Suspect]
     Indication: CARDIOVASCULAR EVENT PROPHYLAXIS
     Dosage: DAILY DOSE 25 MG
     Route: 048
     Dates: start: 20081009, end: 20081128
  8. LASIX [Suspect]
     Indication: CARDIOVASCULAR EVENT PROPHYLAXIS
     Dosage: DAILY DOSE 20 MG
     Route: 048
     Dates: start: 20081009, end: 20081128
  9. WARFARIN [Suspect]
     Indication: ANTICOAGULANT THERAPY
     Dosage: 1 MG (DAILY DOSE), , ORAL
     Route: 048
     Dates: start: 20081009, end: 20081128
  10. ASPIRIN [Suspect]
     Dosage: DAILY DOSE 100 MG
     Route: 048
     Dates: start: 20081218
  11. DEPAS [Suspect]
     Dosage: 2 MG (DAILY DOSE), , ORAL
     Route: 048
     Dates: start: 20081201
  12. LIPITOR [Suspect]
     Indication: LIPIDS DECREASED
     Dosage: 10 MG (DAILY DOSE), , ORAL
     Route: 048
     Dates: start: 20091009, end: 20091128
  13. LASIX [Suspect]
     Dosage: DAILY DOSE 20 MG
     Route: 048
     Dates: start: 20081218
  14. HERBESSER [Suspect]
     Indication: HYPERTENSION
     Dosage: DAILY DOSE 100 MG
     Route: 048
     Dates: start: 20081009, end: 20081128
  15. DEPAS [Suspect]
     Indication: ANXIETY
     Dosage: 2 MG (DAILY DOSE), , ORAL
     Route: 048
     Dates: start: 20081009, end: 20081128
  16. GASTER [Suspect]
     Indication: GASTRITIS
     Dosage: DAILY DOSE 40 MG
     Route: 048
     Dates: start: 20081009, end: 20081128

REACTIONS (1)
  - HEPATITIS ACUTE [None]
